FAERS Safety Report 13761797 (Version 1)
Quarter: 2017Q3

REPORT INFORMATION
  Report Type: Spontaneous
  Country: FR (occurrence: FR)
  Receive Date: 20170718
  Receipt Date: 20170718
  Transmission Date: 20171127
  Serious: Yes (Other)
  Sender: FDA-Public Use
  Company Number: FR-ROCHE-1964088

PATIENT
  Age: 63 Year
  Sex: Male

DRUGS (8)
  1. EPIRUBICIN [Concomitant]
     Active Substance: EPIRUBICIN
     Dosage: CYCLE 1
     Route: 065
     Dates: start: 20120907
  2. 5-FLUOROURACIL [Concomitant]
     Active Substance: FLUOROURACIL
     Dosage: CYCLE 1
     Route: 065
     Dates: start: 20120907
  3. CYCLOPHOSPHAMIDE. [Concomitant]
     Active Substance: CYCLOPHOSPHAMIDE
     Dosage: CYCLE 1
     Route: 065
     Dates: start: 20120907
  4. DOCETAXEL. [Suspect]
     Active Substance: DOCETAXEL
     Indication: BREAST CANCER
     Dosage: 04/DEC/2012: CYCLE 4
     Route: 042
     Dates: start: 20121113, end: 20121226
  5. 5-FLUOROURACIL [Concomitant]
     Active Substance: FLUOROURACIL
     Dosage: CYCLE 3
     Route: 065
     Dates: start: 20121023
  6. EPIRUBICIN [Concomitant]
     Active Substance: EPIRUBICIN
     Dosage: CYCLE 3
     Route: 065
     Dates: start: 20121023
  7. HERCEPTIN [Suspect]
     Active Substance: TRASTUZUMAB
     Indication: BREAST CANCER
     Dosage: 04/DEC/2012: CYCLE 4
     Route: 042
     Dates: start: 20121113, end: 20121226
  8. CYCLOPHOSPHAMIDE. [Concomitant]
     Active Substance: CYCLOPHOSPHAMIDE
     Dosage: CYCLE 3
     Route: 065
     Dates: start: 20121023

REACTIONS (1)
  - Aplasia [Recovered/Resolved]

NARRATIVE: CASE EVENT DATE: 201212
